FAERS Safety Report 24349899 (Version 1)
Quarter: 2024Q3

REPORT INFORMATION
  Report Type: Report from Study
  Country: IN (occurrence: IN)
  Receive Date: 20240923
  Receipt Date: 20240923
  Transmission Date: 20241017
  Serious: No
  Sender: ROCHE
  Company Number: IN-ROCHE-3484379

PATIENT

DRUGS (69)
  1. TRASTUZUMAB [Suspect]
     Active Substance: TRASTUZUMAB
     Indication: Lung neoplasm malignant
     Route: 065
  2. TRASTUZUMAB [Suspect]
     Active Substance: TRASTUZUMAB
     Indication: Breast cancer
  3. TRASTUZUMAB [Suspect]
     Active Substance: TRASTUZUMAB
     Indication: Cervix carcinoma
  4. ONDANSETRON [Suspect]
     Active Substance: ONDANSETRON
     Indication: Lung neoplasm malignant
     Dosage: 4-8MG
     Route: 042
  5. ONDANSETRON [Suspect]
     Active Substance: ONDANSETRON
     Indication: Breast cancer
  6. ONDANSETRON [Suspect]
     Active Substance: ONDANSETRON
     Indication: Cervix carcinoma
  7. DEXAMETHASONE [Suspect]
     Active Substance: DEXAMETHASONE
     Indication: Lung neoplasm malignant
     Dosage: 2-8 MG,IN 100 ML NORMAL SALINE (0.9N) OVER 30 MINUTES
     Route: 042
  8. DEXAMETHASONE [Suspect]
     Active Substance: DEXAMETHASONE
     Indication: Breast cancer
  9. DEXAMETHASONE [Suspect]
     Active Substance: DEXAMETHASONE
     Indication: Cervix carcinoma
  10. PACLITAXEL [Suspect]
     Active Substance: PACLITAXEL
     Indication: Lung neoplasm malignant
     Route: 065
  11. PACLITAXEL [Suspect]
     Active Substance: PACLITAXEL
     Indication: Breast cancer
  12. PACLITAXEL [Suspect]
     Active Substance: PACLITAXEL
     Indication: Cervix carcinoma
  13. CARBOPLATIN [Suspect]
     Active Substance: CARBOPLATIN
     Indication: Lung neoplasm malignant
     Dosage: 450/300 MG
     Route: 065
  14. CARBOPLATIN [Suspect]
     Active Substance: CARBOPLATIN
     Indication: Breast cancer
  15. CARBOPLATIN [Suspect]
     Active Substance: CARBOPLATIN
     Indication: Cervix carcinoma
  16. CYCLOPHOSPHAMIDE [Suspect]
     Active Substance: CYCLOPHOSPHAMIDE
     Indication: Lung neoplasm malignant
     Dosage: 950/600 MG
     Route: 065
  17. CYCLOPHOSPHAMIDE [Suspect]
     Active Substance: CYCLOPHOSPHAMIDE
     Indication: Breast cancer
  18. CYCLOPHOSPHAMIDE [Suspect]
     Active Substance: CYCLOPHOSPHAMIDE
     Indication: Cervix carcinoma
  19. DOXORUBICIN [Suspect]
     Active Substance: DOXORUBICIN
     Indication: Lung neoplasm malignant
     Route: 065
  20. DOXORUBICIN [Suspect]
     Active Substance: DOXORUBICIN
     Indication: Breast cancer
  21. DOXORUBICIN [Suspect]
     Active Substance: DOXORUBICIN
     Indication: Cervix carcinoma
  22. GEMCITABINE [Suspect]
     Active Substance: GEMCITABINE
     Indication: Lung neoplasm malignant
     Route: 065
  23. GEMCITABINE [Suspect]
     Active Substance: GEMCITABINE
     Indication: Breast cancer
  24. GEMCITABINE [Suspect]
     Active Substance: GEMCITABINE
     Indication: Cervix carcinoma
  25. DOCETAXEL [Suspect]
     Active Substance: DOCETAXEL\DOCETAXEL ANHYDROUS
     Indication: Lung neoplasm malignant
     Route: 065
  26. DOCETAXEL [Suspect]
     Active Substance: DOCETAXEL\DOCETAXEL ANHYDROUS
     Indication: Breast cancer
  27. DOCETAXEL [Suspect]
     Active Substance: DOCETAXEL\DOCETAXEL ANHYDROUS
     Indication: Cervix carcinoma
  28. BORTEZOMIB [Suspect]
     Active Substance: BORTEZOMIB
     Indication: Lung neoplasm malignant
     Route: 065
  29. BORTEZOMIB [Suspect]
     Active Substance: BORTEZOMIB
     Indication: Breast cancer
  30. BORTEZOMIB [Suspect]
     Active Substance: BORTEZOMIB
     Indication: Cervix carcinoma
  31. THALIDOMIDE [Suspect]
     Active Substance: THALIDOMIDE
     Indication: Lung neoplasm malignant
     Route: 065
  32. THALIDOMIDE [Suspect]
     Active Substance: THALIDOMIDE
     Indication: Breast cancer
  33. THALIDOMIDE [Suspect]
     Active Substance: THALIDOMIDE
     Indication: Cervix carcinoma
  34. CISPLATIN [Suspect]
     Active Substance: CISPLATIN
     Indication: Lung neoplasm malignant
     Dosage: 50 MG /75 MG
     Route: 065
  35. CISPLATIN [Suspect]
     Active Substance: CISPLATIN
     Indication: Breast cancer
  36. CISPLATIN [Suspect]
     Active Substance: CISPLATIN
     Indication: Cervix carcinoma
  37. MANNITOL [Suspect]
     Active Substance: MANNITOL
     Indication: Lung neoplasm malignant
     Route: 065
  38. MANNITOL [Suspect]
     Active Substance: MANNITOL
     Indication: Breast cancer
  39. MANNITOL [Suspect]
     Active Substance: MANNITOL
     Indication: Cervix carcinoma
  40. BLEOMYCIN [Suspect]
     Active Substance: BLEOMYCIN SULFATE
     Indication: Lung neoplasm malignant
     Route: 065
  41. BLEOMYCIN [Suspect]
     Active Substance: BLEOMYCIN SULFATE
     Indication: Breast cancer
  42. BLEOMYCIN [Suspect]
     Active Substance: BLEOMYCIN SULFATE
     Indication: Cervix carcinoma
  43. VINBLASTINE [Suspect]
     Active Substance: VINBLASTINE
     Indication: Lung neoplasm malignant
     Route: 065
  44. VINBLASTINE [Suspect]
     Active Substance: VINBLASTINE
     Indication: Breast cancer
  45. VINBLASTINE [Suspect]
     Active Substance: VINBLASTINE
     Indication: Cervix carcinoma
  46. OXALIPLATIN [Suspect]
     Active Substance: OXALIPLATIN
     Indication: Lung neoplasm malignant
     Route: 065
  47. OXALIPLATIN [Suspect]
     Active Substance: OXALIPLATIN
     Indication: Breast cancer
  48. OXALIPLATIN [Suspect]
     Active Substance: OXALIPLATIN
     Indication: Cervix carcinoma
  49. CAPECITABINE [Suspect]
     Active Substance: CAPECITABINE
     Indication: Lung neoplasm malignant
     Route: 065
  50. CAPECITABINE [Suspect]
     Active Substance: CAPECITABINE
     Indication: Breast cancer
  51. CAPECITABINE [Suspect]
     Active Substance: CAPECITABINE
     Indication: Cervix carcinoma
  52. FLUOROURACIL [Suspect]
     Active Substance: FLUOROURACIL
     Indication: Lung neoplasm malignant
     Route: 065
  53. FLUOROURACIL [Suspect]
     Active Substance: FLUOROURACIL
     Indication: Breast cancer
  54. FLUOROURACIL [Suspect]
     Active Substance: FLUOROURACIL
     Indication: Cervix carcinoma
  55. PEMETREXED [Suspect]
     Active Substance: PEMETREXED
     Indication: Lung neoplasm malignant
     Route: 065
  56. PEMETREXED [Suspect]
     Active Substance: PEMETREXED
     Indication: Breast cancer
  57. PEMETREXED [Suspect]
     Active Substance: PEMETREXED
     Indication: Cervix carcinoma
  58. MITOXANTRONE [Suspect]
     Active Substance: MITOXANTRONE HYDROCHLORIDE
     Indication: Lung neoplasm malignant
     Route: 065
  59. MITOXANTRONE [Suspect]
     Active Substance: MITOXANTRONE HYDROCHLORIDE
     Indication: Breast cancer
  60. MITOXANTRONE [Suspect]
     Active Substance: MITOXANTRONE HYDROCHLORIDE
     Indication: Cervix carcinoma
  61. PENTOSTATIN [Suspect]
     Active Substance: PENTOSTATIN
     Indication: Lung neoplasm malignant
     Route: 065
  62. PENTOSTATIN [Suspect]
     Active Substance: PENTOSTATIN
     Indication: Breast cancer
  63. PENTOSTATIN [Suspect]
     Active Substance: PENTOSTATIN
     Indication: Cervix carcinoma
  64. TOPOTECAN [Suspect]
     Active Substance: TOPOTECAN HYDROCHLORIDE
     Indication: Lung neoplasm malignant
     Route: 065
  65. TOPOTECAN [Suspect]
     Active Substance: TOPOTECAN HYDROCHLORIDE
     Indication: Breast cancer
  66. TOPOTECAN [Suspect]
     Active Substance: TOPOTECAN HYDROCHLORIDE
     Indication: Cervix carcinoma
  67. DACARBAZINE [Suspect]
     Active Substance: DACARBAZINE
     Indication: Lung neoplasm malignant
     Route: 065
  68. DACARBAZINE [Suspect]
     Active Substance: DACARBAZINE
     Indication: Breast cancer
  69. DACARBAZINE [Suspect]
     Active Substance: DACARBAZINE
     Indication: Cervix carcinoma

REACTIONS (1)
  - Left ventricular dysfunction [Unknown]
